FAERS Safety Report 9023585 (Version 2)
Quarter: 2013Q1

REPORT INFORMATION
  Report Type: Spontaneous
  Country: JP (occurrence: JP)
  Receive Date: 20130121
  Receipt Date: 20130208
  Transmission Date: 20140127
  Serious: Yes (Hospitalization)
  Sender: FDA-Public Use
  Company Number: JP-NOVOPROD-368922

PATIENT
  Age: 75 Year
  Sex: Male
  Weight: 44 kg

DRUGS (4)
  1. NOVOLIN [Suspect]
     Indication: TYPE 2 DIABETES MELLITUS
     Dosage: 38 IU, QD
     Route: 058
     Dates: start: 200610, end: 200801
  2. NOVORAPID 30 MIX [Suspect]
     Indication: TYPE 2 DIABETES MELLITUS
     Dosage: 42 IU, QD
     Route: 058
     Dates: start: 200801, end: 200901
  3. NOVORAPID [Concomitant]
     Indication: TYPE 2 DIABETES MELLITUS
     Dosage: UNK
     Route: 058
     Dates: start: 200901, end: 200904
  4. NOVOLIN N CHU FLEXPEN [Concomitant]
     Indication: TYPE 2 DIABETES MELLITUS
     Dosage: UNK
     Route: 058
     Dates: start: 200901, end: 200904

REACTIONS (2)
  - Anti-insulin antibody [Not Recovered/Not Resolved]
  - Blood glucose fluctuation [Recovering/Resolving]
